FAERS Safety Report 18605649 (Version 3)
Quarter: 2020Q4

REPORT INFORMATION
  Report Type: Spontaneous
  Country: US (occurrence: US)
  Receive Date: 20201211
  Receipt Date: 20201215
  Transmission Date: 20210114
  Serious: Yes (Other)
  Sender: FDA-Public Use
  Company Number: US-SA-2020SA352986

PATIENT

DRUGS (1)
  1. LANTUS [Suspect]
     Active Substance: INSULIN GLARGINE
     Indication: TYPE 1 DIABETES MELLITUS
     Dosage: UPTO 10 IU DAILY
     Route: 065

REACTIONS (3)
  - Diabetes mellitus inadequate control [Recovering/Resolving]
  - Extra dose administered [Recovering/Resolving]
  - Product quality issue [Recovering/Resolving]
